FAERS Safety Report 24928566 (Version 1)
Quarter: 2025Q1

REPORT INFORMATION
  Report Type: Spontaneous
  Country: US (occurrence: None)
  Receive Date: 20250204
  Receipt Date: 20250204
  Transmission Date: 20250409
  Serious: Yes (Death)
  Sender: FDA-CTU
  Company Number: None

PATIENT
  Sex: Male

DRUGS (12)
  1. TACROLIMUS [Suspect]
     Active Substance: TACROLIMUS
     Dosage: 0.5 MG TWICE A DAY ORAL
     Route: 048
     Dates: start: 20230526, end: 20241226
  2. ELIQUIS [Concomitant]
     Active Substance: APIXABAN
  3. ATORVASTATIN [Concomitant]
     Active Substance: ATORVASTATIN
  4. metoprolol er 25mg [Concomitant]
  5. hydroxyzine 50mg [Concomitant]
  6. CLONIDINE [Concomitant]
     Active Substance: CLONIDINE
  7. ESCITALOPRAM [Concomitant]
     Active Substance: ESCITALOPRAM OXALATE
  8. QUETIAPINE [Concomitant]
     Active Substance: QUETIAPINE
  9. GABAPENTIN [Concomitant]
     Active Substance: GABAPENTIN
  10. mag-tab sr 84mg [Concomitant]
  11. FAMOTIDINE [Concomitant]
     Active Substance: FAMOTIDINE
  12. VITAMIN D2 [Concomitant]
     Active Substance: ERGOCALCIFEROL

REACTIONS (1)
  - Death [None]
